FAERS Safety Report 9937631 (Version 2)
Quarter: 2014Q1

REPORT INFORMATION
  Report Type: Report from Study
  Country: US (occurrence: US)
  Receive Date: 20140303
  Receipt Date: 20140307
  Transmission Date: 20141002
  Serious: Yes (Other)
  Sender: FDA-Public Use
  Company Number: US-ROCHE-1353710

PATIENT
  Age: 77 Year
  Sex: Female
  Weight: 73.09 kg

DRUGS (7)
  1. XOLAIR [Suspect]
     Indication: ASTHMA
     Route: 058
     Dates: start: 20130130
  2. DIOVAN [Concomitant]
     Indication: HYPERTENSION
     Route: 048
  3. HYDROCHLOROTHIAZIDE [Concomitant]
     Route: 048
  4. SINGULAIR [Concomitant]
     Indication: ASTHMA
     Route: 048
  5. SYMBICORT [Concomitant]
     Indication: ASTHMA
     Route: 065
  6. ALBUTEROL [Concomitant]
     Dosage: 20 PUFFS AS REQUIRED Q4-QG HR
     Route: 065
  7. SPIRIVA [Concomitant]

REACTIONS (8)
  - Pulmonary mass [Not Recovered/Not Resolved]
  - Dysphonia [Unknown]
  - Alopecia [Not Recovered/Not Resolved]
  - Weight decreased [Unknown]
  - Pruritus [Not Recovered/Not Resolved]
  - Onychoclasis [Unknown]
  - Nail ridging [Unknown]
  - Constipation [Unknown]
